FAERS Safety Report 19657913 (Version 4)
Quarter: 2022Q2

REPORT INFORMATION
  Report Type: Other
  Country: US (occurrence: None)
  Receive Date: 20210804
  Receipt Date: 20220418
  Transmission Date: 20220720
  Serious: Yes (Hospitalization, Other)
  Sender: FDA-Public Use
  Company Number: US-ROCHE-2868799

PATIENT
  Sex: Female
  Weight: 111.23 kg

DRUGS (15)
  1. OCREVUS [Suspect]
     Active Substance: OCRELIZUMAB
     Indication: Secondary progressive multiple sclerosis
     Dosage: DAY 1
     Route: 042
     Dates: start: 20180620
  2. OCREVUS [Suspect]
     Active Substance: OCRELIZUMAB
     Indication: Relapsing-remitting multiple sclerosis
     Dosage: DAY 15
     Route: 042
     Dates: start: 20180711
  3. OCREVUS [Suspect]
     Active Substance: OCRELIZUMAB
     Dosage: DATE OF SERVICE: 23/DEC/2020, 25/JUN/2020, 29/DEC/2020, 26/JUN/2020
     Route: 042
     Dates: start: 20191219
  4. OCREVUS [Suspect]
     Active Substance: OCRELIZUMAB
     Route: 042
  5. BENADRYL [Suspect]
     Active Substance: DIPHENHYDRAMINE HYDROCHLORIDE
     Indication: Product used for unknown indication
     Route: 065
  6. BACLOFEN [Concomitant]
     Active Substance: BACLOFEN
  7. AMLODIPINE [Concomitant]
     Active Substance: AMLODIPINE BESYLATE
  8. METOPROLOL [Concomitant]
     Active Substance: METOPROLOL
  9. DULOXETINE [Concomitant]
     Active Substance: DULOXETINE
  10. MIRANAX [Concomitant]
  11. LASIX [Concomitant]
     Active Substance: FUROSEMIDE
  12. MIRABEGRON [Concomitant]
     Active Substance: MIRABEGRON
  13. PRILOSEC [Concomitant]
     Active Substance: OMEPRAZOLE MAGNESIUM
  14. TROSPIUM [Concomitant]
     Active Substance: TROSPIUM
  15. SODIUM CHLORIDE [Concomitant]
     Active Substance: SODIUM CHLORIDE
     Route: 048

REACTIONS (21)
  - Sepsis [Unknown]
  - Urinary tract infection [Not Recovered/Not Resolved]
  - Cellulitis [Unknown]
  - Lymphoedema [Unknown]
  - VIIth nerve injury [Unknown]
  - Head injury [Recovering/Resolving]
  - Multiple sclerosis relapse [Not Recovered/Not Resolved]
  - Escherichia infection [Not Recovered/Not Resolved]
  - Fall [Unknown]
  - Headache [Recovered/Resolved]
  - Dyspnoea [Recovered/Resolved]
  - Throat tightness [Recovered/Resolved]
  - Urinary incontinence [Not Recovered/Not Resolved]
  - Illness [Not Recovered/Not Resolved]
  - Ill-defined disorder [Not Recovered/Not Resolved]
  - Gait disturbance [Not Recovered/Not Resolved]
  - Haemorrhage [Recovered/Resolved]
  - Suture insertion [Recovered/Resolved]
  - COVID-19 [Not Recovered/Not Resolved]
  - Migraine [Recovered/Resolved]
  - Gait disturbance [Not Recovered/Not Resolved]

NARRATIVE: CASE EVENT DATE: 20200101
